FAERS Safety Report 4474270-8 (Version None)
Quarter: 2004Q4

REPORT INFORMATION
  Report Type: 
  Country: None (occurrence: None)
  Receive Date: 20041013
  Receipt Date: 20040929
  Transmission Date: 20050328
  Serious: Yes (Hospitalization)
  Sender: FDA-Public Use
  Company Number: 2004AC00381

PATIENT
  Sex: Male

DRUGS (8)
  1. CRESTOR [Suspect]
     Dates: start: 20040901, end: 20040915
  2. CORDARONE [Concomitant]
  3. CORUNO [Concomitant]
  4. KREDEX [Concomitant]
  5. BURINEX [Concomitant]
  6. SINGULAIR [Concomitant]
  7. LESCOL [Concomitant]
  8. PLAVIX [Concomitant]

REACTIONS (1)
  - VASCULITIS NECROTISING [None]
